FAERS Safety Report 6461816-3 (Version None)
Quarter: 2009Q4

REPORT INFORMATION
  Report Type: 
  Country: None (occurrence: None)
  Receive Date: 20091130
  Receipt Date: 20091119
  Transmission Date: 20100525
  Serious: Yes (Other)
  Sender: FDA-Public Use
  Company Number: PHEH2009US16327

PATIENT
  Age: 47 Year
  Sex: Female
  Weight: 68 kg

DRUGS (6)
  1. GLEEVEC [Suspect]
     Indication: NEOPLASM MALIGNANT
     Dosage: 200 MG DAILY
     Route: 048
     Dates: start: 20090330
  2. GLEEVEC [Suspect]
     Dosage: 200 MG DAILY
     Dates: start: 20091112
  3. LISINOPRIL [Concomitant]
     Dosage: 5 MG, UNK
  4. PANTOPRAZOLE [Concomitant]
     Dosage: 40 MG, UNK
  5. OXYCODONE HCL [Concomitant]
     Dosage: UNK
  6. DOCUSATE [Concomitant]
     Dosage: 100 MG, UNK

REACTIONS (3)
  - NAUSEA [None]
  - SURGERY [None]
  - VOMITING [None]
